FAERS Safety Report 20471075 (Version 1)
Quarter: 2022Q1

REPORT INFORMATION
  Report Type: Other
  Country: CA (occurrence: CA)
  Receive Date: 20220214
  Receipt Date: 20220214
  Transmission Date: 20220424
  Serious: Yes (Life-Threatening, Hospitalization, Other)
  Sender: FDA-Public Use
  Company Number: CA-PURDUE PHARMA-CAN-2017-0007367

PATIENT
  Age: 60 Year
  Sex: Male

DRUGS (20)
  1. MORPHINE SULFATE [Interacting]
     Active Substance: MORPHINE SULFATE
     Indication: Ankle fracture
     Dosage: 10 MG, Q3H
     Route: 048
  2. MORPHINE SULFATE [Interacting]
     Active Substance: MORPHINE SULFATE
     Indication: Procedural pain
     Dosage: UNK
     Route: 048
  3. MORPHINE SULFATE [Interacting]
     Active Substance: MORPHINE SULFATE
     Indication: Ankle fracture
     Dosage: 2 MG, UNK
     Route: 042
  4. MORPHINE SULFATE [Interacting]
     Active Substance: MORPHINE SULFATE
     Indication: Procedural pain
     Dosage: UNK
     Route: 042
  5. MORPHINE SULFATE [Interacting]
     Active Substance: MORPHINE SULFATE
     Indication: Ankle fracture
     Route: 058
  6. MORPHINE SULFATE [Interacting]
     Active Substance: MORPHINE SULFATE
     Indication: Procedural pain
  7. ACETAMINOPHEN\CODEINE PHOSPHATE [Interacting]
     Active Substance: ACETAMINOPHEN\CODEINE PHOSPHATE
     Indication: Ankle fracture
     Dosage: 2 DF, PRN
     Route: 048
  8. ACETAMINOPHEN\CODEINE PHOSPHATE [Interacting]
     Active Substance: ACETAMINOPHEN\CODEINE PHOSPHATE
     Indication: Procedural pain
     Dosage: UNK
     Route: 048
  9. CEFUROXIME [Suspect]
     Active Substance: CEFUROXIME
     Indication: Pneumonia
     Dosage: 750 MG, 1 EVERY 8 HOURS
     Route: 042
  10. CIPROFLOXACIN [Interacting]
     Active Substance: CIPROFLOXACIN
     Indication: Pneumonia aspiration
     Dosage: 400 MG, BID
     Route: 042
  11. LEVOMEPROMAZINE [Interacting]
     Active Substance: LEVOMEPROMAZINE
     Indication: Ankle fracture
     Dosage: UNK, PRN
     Route: 048
  12. LEVOMEPROMAZINE [Interacting]
     Active Substance: LEVOMEPROMAZINE
     Dosage: UNK
     Route: 048
  13. METHADONE [Interacting]
     Active Substance: METHADONE HYDROCHLORIDE
     Indication: Drug dependence
     Dosage: 50 MG, DAILY
     Route: 048
  14. CEFUROXIME [Concomitant]
     Active Substance: CEFUROXIME
     Indication: Product used for unknown indication
     Dosage: UNK
     Route: 065
  15. DALTEPARIN SODIUM [Concomitant]
     Active Substance: DALTEPARIN SODIUM
     Indication: Product used for unknown indication
     Dosage: UNK
     Route: 058
  16. FOLIC ACID [Concomitant]
     Active Substance: FOLIC ACID
     Dosage: UNK
     Route: 048
  17. IPRATROPIUM BROMIDE [Concomitant]
     Active Substance: IPRATROPIUM BROMIDE
     Indication: Pneumonia
     Dosage: UNK
     Route: 065
  18. ALBUTEROL [Concomitant]
     Active Substance: ALBUTEROL
     Indication: Pneumonia
     Dosage: UNK
     Route: 065
  19. THIAMINE [Concomitant]
     Active Substance: THIAMINE
     Dosage: UNK
     Route: 048
  20. CLINDAMYCIN [Concomitant]
     Active Substance: CLINDAMYCIN
     Indication: Product used for unknown indication
     Route: 065

REACTIONS (5)
  - Drug interaction [Recovered/Resolved]
  - Toxicity to various agents [Recovered/Resolved]
  - Respiratory depression [Recovered/Resolved]
  - Depressed level of consciousness [Recovered/Resolved]
  - Miosis [Recovered/Resolved]
